FAERS Safety Report 16052675 (Version 2)
Quarter: 2019Q1

REPORT INFORMATION
  Report Type: Spontaneous
  Country: US (occurrence: US)
  Receive Date: 20190308
  Receipt Date: 20190308
  Transmission Date: 20190418
  Serious: No
  Sender: FDA-Public Use
  Company Number: PHEH2019US008898

PATIENT
  Sex: Female
  Weight: 108.8 kg

DRUGS (2)
  1. TRILEPTAL [Suspect]
     Active Substance: OXCARBAZEPINE
     Indication: PSYCHOTIC DISORDER
     Dosage: 600 MG, QD
     Route: 065
     Dates: start: 20180124
  2. OMEPRAZOLE. [Suspect]
     Active Substance: OMEPRAZOLE
     Indication: DYSPEPSIA
     Dosage: 20 MG, BID
     Route: 048

REACTIONS (1)
  - Drug ineffective [Unknown]
